FAERS Safety Report 25381561 (Version 1)
Quarter: 2025Q2

REPORT INFORMATION
  Report Type: Spontaneous
  Country: US (occurrence: US)
  Receive Date: 20250531
  Receipt Date: 20250531
  Transmission Date: 20250716
  Serious: No
  Sender: CIPLA
  Company Number: US-CIPLA LTD.-2024US09443

PATIENT

DRUGS (2)
  1. ALBUTEROL [Suspect]
     Active Substance: ALBUTEROL
     Indication: Product used for unknown indication
     Route: 065
  2. ALBUTEROL [Suspect]
     Active Substance: ALBUTEROL
     Dosage: 1 PUFF IN MORNING AND 1 PUFF AT NIGHT BEFORE BED
     Route: 065

REACTIONS (4)
  - Incorrect dose administered by device [Unknown]
  - Intentional product use issue [Unknown]
  - Device delivery system issue [Unknown]
  - Product substitution issue [Unknown]
